FAERS Safety Report 11372782 (Version 1)
Quarter: 2015Q3

REPORT INFORMATION
  Report Type: Spontaneous
  Country: US (occurrence: US)
  Receive Date: 20150811
  Receipt Date: 20150811
  Transmission Date: 20151125
  Serious: No
  Sender: FDA-Public Use
  Company Number: US-ELI_LILLY_AND_COMPANY-US201111002448

PATIENT
  Age: 50 Year
  Sex: Male
  Weight: 68.03 kg

DRUGS (1)
  1. AXIRON [Suspect]
     Active Substance: TESTOSTERONE
     Indication: BLOOD TESTOSTERONE DECREASED
     Dosage: 30 MG, QD UNDER EACH ARM
     Route: 062
     Dates: start: 20110516

REACTIONS (9)
  - Dysuria [Recovered/Resolved]
  - Headache [Recovered/Resolved]
  - Pain [Unknown]
  - Influenza [Recovered/Resolved]
  - Abdominal discomfort [Recovered/Resolved]
  - Micturition urgency [Recovered/Resolved]
  - Asthenia [Recovered/Resolved]
  - Prostatomegaly [Recovered/Resolved]
  - Rash [Recovered/Resolved]

NARRATIVE: CASE EVENT DATE: 20111102
